FAERS Safety Report 5534501-X (Version None)
Quarter: 2007Q4

REPORT INFORMATION
  Report Type: 
  Country: None (occurrence: None)
  Receive Date: 20071204
  Receipt Date: 20071204
  Transmission Date: 20080405
  Serious: Yes (Life-Threatening, Hospitalization, Other)
  Sender: FDA-Public Use
  Company Number: None

PATIENT
  Sex: Male
  Weight: 64 kg

DRUGS (2)
  1. CARBOPLATIN [Suspect]
     Indication: ADENOSQUAMOUS CELL LUNG CANCER
     Dosage: 795MG  CYCLE 1  IV
     Route: 042
     Dates: start: 20071022, end: 20071022
  2. PACLITAXEL [Suspect]
     Indication: ADENOSQUAMOUS CELL LUNG CANCER
     Dosage: 350MG  CYCLE 1   IV
     Route: 042
     Dates: start: 20071022, end: 20071022

REACTIONS (1)
  - ADRENAL HAEMORRHAGE [None]
